FAERS Safety Report 22953085 (Version 3)
Quarter: 2024Q3

REPORT INFORMATION
  Report Type: Spontaneous
  Country: IT (occurrence: IT)
  Receive Date: 20230918
  Receipt Date: 20240708
  Transmission Date: 20241016
  Serious: Yes (Life-Threatening, Hospitalization, Other)
  Sender: ACCORD
  Company Number: None

PATIENT
  Age: 66 Year
  Sex: Female
  Weight: 80 kg

DRUGS (8)
  1. RAMIPRIL [Suspect]
     Active Substance: RAMIPRIL
     Indication: Hypertension
     Dosage: NOT KNOWN
  2. FUROSEMIDE [Suspect]
     Active Substance: FUROSEMIDE
     Indication: Product used for unknown indication
  3. BISOPROLOL [Suspect]
     Active Substance: BISOPROLOL\BISOPROLOL FUMARATE
     Indication: Atrial fibrillation
     Dosage: 2.5 MG 1 TABLET/DAY.
  4. ALDACTONE [Suspect]
     Active Substance: SPIRONOLACTONE
     Indication: Hepatic cirrhosis
  5. DIGOXIN [Suspect]
     Active Substance: DIGOXIN
     Indication: Atrial fibrillation
     Dosage: 0.250 MG 1 TABLET FROM MONDAY TO FRIDAY AND 0.125 MG SATURDAY AND SUNDAY.??ONCE PER DAY
  6. PRAVASTATIN [Concomitant]
     Active Substance: PRAVASTATIN
  7. DIGOXIN [Suspect]
     Active Substance: DIGOXIN
     Indication: Atrial fibrillation
     Dosage: 0.250 MG 1 TABLET FROM MONDAY TO FRIDAY AND 0.125 MG SATURDAY AND SUNDAY.
  8. BISOPROLOL [Suspect]
     Active Substance: BISOPROLOL\BISOPROLOL FUMARATE
     Indication: Atrial fibrillation
     Dosage: TWICE PER DAY

REACTIONS (5)
  - Anuria [Recovering/Resolving]
  - Toxicity to various agents [Recovering/Resolving]
  - BRASH syndrome [Recovering/Resolving]
  - Chronic kidney disease [Unknown]
  - Visual impairment [Unknown]

NARRATIVE: CASE EVENT DATE: 20230726
